FAERS Safety Report 10724467 (Version 1)
Quarter: 2015Q1

REPORT INFORMATION
  Report Type: Spontaneous
  Country: US (occurrence: None)
  Receive Date: 20150115
  Receipt Date: 20150115
  Transmission Date: 20150721
  Serious: Yes (Other)
  Sender: FDA-Public Use
  Company Number: ABR_01919_2015

PATIENT
  Age: 62 Year
  Sex: Male
  Weight: 100 kg

DRUGS (10)
  1. DOCUSATE SODIUM. [Concomitant]
     Active Substance: DOCUSATE SODIUM
  2. FAMOTIDINE. [Concomitant]
     Active Substance: FAMOTIDINE
  3. HEPARIN [Concomitant]
     Active Substance: HEPARIN SODIUM
  4. LEVETIRACETAM. [Concomitant]
     Active Substance: LEVETIRACETAM
  5. NICARDIPINE [Concomitant]
     Active Substance: NICARDIPINE
  6. SODIUM PHOSPHATE [Concomitant]
     Active Substance: SODIUM PHOSPHATE
  7. POTASSIUM PHOSPHATE [Concomitant]
     Active Substance: POTASSIUM PHOSPHATE
  8. LISINOPRIL. [Concomitant]
     Active Substance: LISINOPRIL
  9. ATORVASTATIN [Concomitant]
     Active Substance: ATORVASTATIN
  10. NIMODIPINE. [Suspect]
     Active Substance: NIMODIPINE
     Indication: SUBARACHNOID HAEMORRHAGE
     Dosage: Q4H
     Route: 048

REACTIONS (7)
  - Pneumonia [None]
  - Respiratory distress [None]
  - Pneumothorax [None]
  - Atelectasis [None]
  - Hypoxia [None]
  - Pulmonary vascular disorder [None]
  - Weaning failure [None]
